FAERS Safety Report 9792987 (Version 1)
Quarter: 2014Q1

REPORT INFORMATION
  Report Type: Spontaneous
  Country: AT (occurrence: AT)
  Receive Date: 20140102
  Receipt Date: 20140102
  Transmission Date: 20141002
  Serious: Yes (Other)
  Sender: FDA-Public Use
  Company Number: AT-ABBVIE-13P-009-1185138-00

PATIENT
  Age: 21 Year
  Sex: Male

DRUGS (7)
  1. DEPAKINE [Suspect]
     Indication: PRODUCT USED FOR UNKNOWN INDICATION
     Dosage: TIME TO ONSET: 49 DAYS
     Dates: start: 20130605, end: 20130801
  2. LITHIUM ACETATE [Suspect]
     Indication: PRODUCT USED FOR UNKNOWN INDICATION
     Dates: start: 20130722
  3. ABILIFY [Suspect]
     Indication: PRODUCT USED FOR UNKNOWN INDICATION
     Dates: start: 20130724, end: 20130726
  4. ABILIFY [Suspect]
     Dates: start: 20130727, end: 20130729
  5. SYCREST [Concomitant]
     Indication: PRODUCT USED FOR UNKNOWN INDICATION
     Dates: start: 20130531
  6. RISPERDAL [Concomitant]
     Indication: PRODUCT USED FOR UNKNOWN INDICATION
     Dates: start: 20130722, end: 20130722
  7. ZOLPIDEM TARTRATE [Concomitant]
     Indication: PRODUCT USED FOR UNKNOWN INDICATION
     Dates: start: 20130722

REACTIONS (5)
  - Parkinsonism [Recovering/Resolving]
  - Tremor [Recovering/Resolving]
  - Quality of life decreased [Recovering/Resolving]
  - Ataxia [Recovering/Resolving]
  - Salivary hypersecretion [Recovering/Resolving]
